FAERS Safety Report 15053673 (Version 1)
Quarter: 2018Q2

REPORT INFORMATION
  Report Type: Report from Study
  Country: US (occurrence: US)
  Receive Date: 20180622
  Receipt Date: 20180622
  Transmission Date: 20180711
  Serious: No
  Sender: FDA-Public Use
  Company Number: US-AMGEN-USASP2015085382

PATIENT
  Age: 48 Year
  Sex: Male
  Weight: 91.5 kg

DRUGS (3)
  1. TYLENOL [Concomitant]
     Active Substance: ACETAMINOPHEN
     Indication: PAIN
     Dosage: 500 MG, BID
     Route: 048
     Dates: start: 20120509
  2. NPLATE [Suspect]
     Active Substance: ROMIPLOSTIM
     Indication: APLASTIC ANAEMIA
     Dosage: 500 MUG, QWK
     Route: 058
     Dates: start: 20120420
  3. MULTIVITAMINS [Concomitant]
     Active Substance: VITAMINS
     Dosage: UNK UNK, QD
     Route: 048

REACTIONS (3)
  - Off label use [Unknown]
  - Platelet count decreased [Not Recovered/Not Resolved]
  - Platelet count abnormal [Unknown]

NARRATIVE: CASE EVENT DATE: 2014
